FAERS Safety Report 17377007 (Version 3)
Quarter: 2020Q1

REPORT INFORMATION
  Report Type: Spontaneous
  Country: US (occurrence: US)
  Receive Date: 20200206
  Receipt Date: 20200317
  Transmission Date: 20200409
  Serious: Yes (Hospitalization, Other)
  Sender: FDA-Public Use
  Company Number: US-PFIZER INC-2020049940

PATIENT
  Age: 44 Year
  Sex: Male
  Weight: 102.4 kg

DRUGS (1)
  1. VIAGRA [Suspect]
     Active Substance: SILDENAFIL CITRATE
     Indication: SEXUALLY ACTIVE
     Dosage: 100 MG, UNK((1) EVERY (3-5 DAYS))
     Dates: start: 1996

REACTIONS (3)
  - Malaise [Recovered/Resolved]
  - Cardiac aneurysm [Not Recovered/Not Resolved]
  - Chronic obstructive pulmonary disease [Not Recovered/Not Resolved]

NARRATIVE: CASE EVENT DATE: 1996
